FAERS Safety Report 6336858-9 (Version None)
Quarter: 2009Q3

REPORT INFORMATION
  Report Type: 
  Country: None (occurrence: None)
  Receive Date: 20090901
  Receipt Date: 20090824
  Transmission Date: 20100115
  Serious: Yes (Other)
  Sender: FDA-Public Use
  Company Number: US-BAYER-200913295BCC

PATIENT
  Age: 65 Year
  Sex: Male

DRUGS (3)
  1. ASPIRIN [Suspect]
     Indication: IMPLANTABLE DEFIBRILLATOR INSERTION
     Route: 048
     Dates: start: 20070101
  2. CLOPIDOGREL [Suspect]
     Indication: IMPLANTABLE DEFIBRILLATOR INSERTION
     Route: 048
     Dates: start: 20070101
  3. WARFARIN SODIUM [Concomitant]
     Route: 065

REACTIONS (4)
  - APHASIA [None]
  - ATRIAL FIBRILLATION [None]
  - CEREBROVASCULAR ACCIDENT [None]
  - THROMBOSIS [None]
